FAERS Safety Report 23628089 (Version 1)
Quarter: 2024Q1

REPORT INFORMATION
  Report Type: Spontaneous
  Country: FR (occurrence: FR)
  Receive Date: 20240313
  Receipt Date: 20240313
  Transmission Date: 20240410
  Serious: Yes (Hospitalization)
  Sender: FDA-Public Use
  Company Number: None

PATIENT
  Age: 77 Year
  Sex: Female
  Weight: 52.6 kg

DRUGS (3)
  1. LINEZOLID [Suspect]
     Active Substance: LINEZOLID
     Indication: Osteomyelitis
     Dosage: 600 MILLIGRAM, BID (12 HOURS)
     Route: 048
     Dates: start: 20231217, end: 20240118
  2. LINEZOLID [Suspect]
     Active Substance: LINEZOLID
     Dosage: 600 MILLIGRAM, QD (24 HOURS)
     Route: 048
     Dates: start: 20240119, end: 20240123
  3. LEVOFLOXACIN [Concomitant]
     Active Substance: LEVOFLOXACIN
     Dosage: UNK
     Route: 065

REACTIONS (2)
  - Acute kidney injury [Recovered/Resolved]
  - Lactic acidosis [Recovered/Resolved]

NARRATIVE: CASE EVENT DATE: 20240110
